FAERS Safety Report 4953106-2 (Version None)
Quarter: 2006Q1

REPORT INFORMATION
  Report Type: 
  Country: None (occurrence: None)
  Receive Date: 20060320
  Receipt Date: 20060306
  Transmission Date: 20060701
  Serious: Yes (Other)
  Sender: FDA-Public Use
  Company Number: 2006000327

PATIENT
  Age: 73 Year
  Sex: Male
  Weight: 95.2554 kg

DRUGS (7)
  1. LIPITOR [Suspect]
     Indication: BLOOD CHOLESTEROL INCREASED
     Dosage: 40 MG (40 MG, 1 IN 1 D)
  2. CELEXA [Suspect]
     Indication: DEPRESSION
     Dates: start: 20040101
  3. ZOLOFT [Suspect]
     Indication: DEPRESSION
  4. LOPRESSOR [Concomitant]
  5. SPIRONOLACTONE [Concomitant]
  6. CAPTOPRIL [Concomitant]
  7. HYDROCHLOROTHIAZIDE [Concomitant]

REACTIONS (8)
  - CONSTIPATION [None]
  - CORONARY ARTERY SURGERY [None]
  - DIABETES MELLITUS [None]
  - DIABETIC NEUROPATHY [None]
  - DRUG INEFFECTIVE [None]
  - DRUG INTERACTION [None]
  - MYALGIA [None]
  - PARAESTHESIA [None]
